FAERS Safety Report 11593485 (Version 1)
Quarter: 2015Q4

REPORT INFORMATION
  Report Type: Spontaneous
  Country: US (occurrence: None)
  Receive Date: 20151002
  Receipt Date: 20151002
  Transmission Date: 20160304
  Serious: Yes (Hospitalization)
  Sender: FDA-Public Use
  Company Number: None

PATIENT
  Age: 73 Year
  Sex: Male
  Weight: 93 kg

DRUGS (15)
  1. CARBOXYMETHYLCELLULOSE 1 DROP [Concomitant]
  2. WARFARIN 5 MG [Suspect]
     Active Substance: WARFARIN
     Indication: ATRIAL FIBRILLATION
     Dosage: 0.5 - 1 TABLET
     Route: 048
  3. PROBIOTIC [Concomitant]
     Active Substance: PROBIOTICS NOS
  4. RESVERATROL 50 MG [Concomitant]
  5. VITAMIN B COMPLEX [Concomitant]
     Active Substance: CYANOCOBALAMIN\DEXPANTHENOL\NIACINAMIDE\PYRIDOXINE HYDROCHLORIDE\RIBOFLAVIN 5^-PHOSPHATE SODIUM\THIAMINE HYDROCHLORIDE\VITAMIN B COMPLEX
  6. MULTIVITAMIN [Concomitant]
     Active Substance: VITAMINS
  7. LUTEIN 1 TABLET [Concomitant]
  8. GLUCOSAMINE 2 CAPSULES [Concomitant]
  9. UBIQUINOL 100 MG [Concomitant]
  10. CINNAMON 500 MG [Concomitant]
  11. GLIMEPIRIDE 4 MG [Concomitant]
     Active Substance: GLIMEPIRIDE
  12. SIMVASTATIN 10 MG [Concomitant]
     Active Substance: SIMVASTATIN
  13. ASCORBIC ACID 1000 MG [Concomitant]
  14. CHOLECALCIFEROL 1200 UNITS [Concomitant]
  15. SOTALOL 40 MG [Concomitant]

REACTIONS (4)
  - Dizziness [None]
  - Rectal haemorrhage [None]
  - Abdominal pain [None]
  - Diverticulum [None]

NARRATIVE: CASE EVENT DATE: 20150921
